FAERS Safety Report 21569689 (Version 3)
Quarter: 2022Q4

REPORT INFORMATION
  Report Type: Spontaneous
  Country: JP (occurrence: JP)
  Receive Date: 20221109
  Receipt Date: 20221125
  Transmission Date: 20230112
  Serious: Yes (Hospitalization)
  Sender: FDA-Public Use
  Company Number: JP-JNJFOC-20221006448

PATIENT
  Age: 62 Year
  Sex: Male

DRUGS (3)
  1. PALIPERIDONE PALMITATE [Suspect]
     Active Substance: PALIPERIDONE PALMITATE
     Indication: Product used for unknown indication
     Dosage: GLUTEAL MUSCLE
     Route: 030
     Dates: start: 202201, end: 2022
  2. PALIPERIDONE PALMITATE [Suspect]
     Active Substance: PALIPERIDONE PALMITATE
  3. PALIPERIDONE PALMITATE [Suspect]
     Active Substance: PALIPERIDONE PALMITATE

REACTIONS (4)
  - Hospitalisation [Unknown]
  - Administration site induration [Unknown]
  - COVID-19 [Recovered/Resolved]
  - Abnormal loss of weight [Unknown]

NARRATIVE: CASE EVENT DATE: 20220101
